FAERS Safety Report 17839278 (Version 1)
Quarter: 2020Q2

REPORT INFORMATION
  Report Type: Spontaneous
  Country: US (occurrence: US)
  Receive Date: 20200529
  Receipt Date: 20200529
  Transmission Date: 20200714
  Serious: No
  Sender: FDA-Public Use
  Company Number: US-ASTRAZENECA-2020SE69282

PATIENT

DRUGS (6)
  1. IBRANCE [Suspect]
     Active Substance: PALBOCICLIB
     Indication: BREAST CANCER FEMALE
     Dosage: 1 DAILY FOR 21 DAYS
     Route: 065
     Dates: start: 20200226
  2. CRESTOR [Suspect]
     Active Substance: ROSUVASTATIN CALCIUM
     Route: 048
  3. XGEVA [Concomitant]
     Active Substance: DENOSUMAB
  4. LETROZOLE. [Concomitant]
     Active Substance: LETROZOLE
  5. ELIQUIS [Concomitant]
     Active Substance: APIXABAN
  6. TURMERIC [Concomitant]
     Active Substance: HERBALS\TURMERIC

REACTIONS (3)
  - Paraesthesia [Unknown]
  - Drug hypersensitivity [Unknown]
  - Hypoaesthesia [Unknown]
